FAERS Safety Report 8949031 (Version 1)
Quarter: 2012Q4

REPORT INFORMATION
  Report Type: 
  Country: US (occurrence: US)
  Receive Date: 20121206
  Receipt Date: 20121206
  Transmission Date: 20130627
  Serious: No
  Sender: FDA-Public Use
  Company Number: US-BAYER-2012-121372

PATIENT
  Age: 71 Year
  Sex: Female
  Weight: 63.95 kg

DRUGS (14)
  1. BETASERON [Suspect]
     Dosage: UNK
     Dates: end: 201110
  2. BETASERON [Suspect]
     Dosage: 0.25 mg, QOD
     Route: 058
     Dates: start: 20121108
  3. CENTRUM SILVER [Concomitant]
  4. CALTRATE WITH VITAMIN D [Concomitant]
  5. CARBAMAZEPIN [Concomitant]
     Dosage: 100 mg, UNK
  6. LISINOPRIL [Concomitant]
     Dosage: 5 mg, UNK
  7. ESTRACE [Concomitant]
     Dosage: 1 mg, UNK
  8. ADVIL [Concomitant]
     Dosage: 200 mg, UNK
  9. VITAMIN D3 [Concomitant]
     Dosage: UNK
  10. ASPIRIN (E.C.) [ACETYLSALICYLIC ACID] [Concomitant]
     Dosage: 81 mg, UNK
  11. ALEVE CAPLET/TABLET,MIDOL EXTENDED RELIEF CAPLET [Concomitant]
     Dosage: 220 mg, UNK
  12. OMEGA 3 [Concomitant]
  13. VESICARE [Concomitant]
     Dosage: 5 mg, UNK
  14. COQ10 [Concomitant]
     Dosage: UNK

REACTIONS (2)
  - Influenza like illness [Unknown]
  - Pain [Unknown]
